FAERS Safety Report 20725625 (Version 2)
Quarter: 2022Q2

REPORT INFORMATION
  Report Type: Spontaneous
  Country: AU (occurrence: AU)
  Receive Date: 20220419
  Receipt Date: 20220426
  Transmission Date: 20220721
  Serious: Yes (Other)
  Sender: FDA-Public Use
  Company Number: AU-MYLANLABS-2022M1027778

PATIENT
  Sex: Female
  Weight: 65 kg

DRUGS (8)
  1. CLOZARIL [Suspect]
     Active Substance: CLOZAPINE
     Indication: Schizophrenia
     Dosage: UNK
     Route: 048
     Dates: start: 20120207, end: 2017
  2. ARIPIPRAZOLE [Suspect]
     Active Substance: ARIPIPRAZOLE
     Indication: Product used for unknown indication
     Dosage: 5 MILLIGRAM, HS (NOCTE)
     Route: 048
     Dates: start: 2017
  3. OLANZAPINE [Suspect]
     Active Substance: OLANZAPINE
     Indication: Product used for unknown indication
     Dosage: UNK, PRN
     Dates: start: 2011
  4. RISPERIDONE [Suspect]
     Active Substance: RISPERIDONE
     Indication: Product used for unknown indication
     Dosage: UNK
     Dates: start: 2011
  5. AMISULPRIDE [Concomitant]
     Active Substance: AMISULPRIDE
     Dosage: 200 MILLIGRAM, AM (MANE)
     Route: 048
  6. AMISULPRIDE [Concomitant]
     Active Substance: AMISULPRIDE
     Dosage: 400 MILLIGRAM, HS (NOCTE)
     Route: 048
  7. ZUCLOPENTHIXOL DECANOATE [Concomitant]
     Active Substance: ZUCLOPENTHIXOL DECANOATE
     Dosage: 400 MILLIGRAM(EVERY 2 WEEKS-LAST GIVEN 6/4/22)
  8. LORAZEPAM [Concomitant]
     Active Substance: LORAZEPAM
     Dosage: UNK, PRN

REACTIONS (9)
  - Cardiomyopathy [Unknown]
  - Gait disturbance [Unknown]
  - Ejection fraction decreased [Recovered/Resolved]
  - Left ventricular dilatation [Unknown]
  - High density lipoprotein decreased [Unknown]
  - Cogwheel rigidity [Unknown]
  - Extrapyramidal disorder [Unknown]
  - Weight increased [Unknown]
  - Akathisia [Unknown]

NARRATIVE: CASE EVENT DATE: 20110101
